FAERS Safety Report 6119757-7 (Version None)
Quarter: 2009Q1

REPORT INFORMATION
  Report Type: 
  Country: None (occurrence: None)
  Receive Date: 20090311
  Receipt Date: 20090223
  Transmission Date: 20090719
  Serious: Yes (Disabling)
  Sender: FDA-Public Use
  Company Number: 021624

PATIENT
  Age: 57 Year
  Sex: Male

DRUGS (9)
  1. BISOPROLOL MERCK /01166101/ [Suspect]
     Indication: TACHYARRHYTHMIA
     Dosage: 1.25 MG (1.25 MG, 1 IN 1 D)
     Dates: start: 20061201
  2. LEVOTHYROXINE SODIUM [Suspect]
     Dosage: 75 MCG, 1 IN 1 D, ORAL
     Route: 048
     Dates: start: 20010101
  3. ALLOPURINOL [Suspect]
     Dosage: 200 MG (200 MG, 1 IN 1 D) ORAL
     Route: 048
     Dates: start: 19850101
  4. FLUVOXAMINE MALEATE [Suspect]
     Dosage: 100 MG (100 MG, 1 IN 1 D) ORAL
     Route: 048
     Dates: start: 19960101
  5. OMEPRAZOLE [Suspect]
     Dosage: 10 MG (10MG, 1 IN 1 D) ORAL
     Route: 048
     Dates: start: 20000101
  6. FUROSEMIDE [Suspect]
     Dosage: 60 MG(60 MG, 1 IN 1 D) ORAL
     Route: 048
     Dates: start: 19900101
  7. DIGOXIN [Suspect]
     Dosage: 0.125 MG (0.125 MG, 1 IN 1 D) ORAL
     Route: 048
     Dates: start: 19900101
  8. ACENOCOUMAROL [Suspect]
     Dosage: 3 MG (3 MG, 1 IN 1 D) ORAL
     Route: 048
     Dates: start: 19950101
  9. TESTOSTERONE [Suspect]
     Dosage: 40 MG( 40 ,G, 1 IN 1 D) ORAL
     Route: 048
     Dates: start: 19980101, end: 20070101

REACTIONS (3)
  - JOINT SPRAIN [None]
  - SOFT TISSUE INJURY [None]
  - TENDON RUPTURE [None]
